FAERS Safety Report 6613570-X (Version None)
Quarter: 2010Q1

REPORT INFORMATION
  Report Type: 
  Country: None (occurrence: None)
  Receive Date: 20100304
  Receipt Date: 20100226
  Transmission Date: 20100710
  Serious: Yes (Death, Life-Threatening)
  Sender: FDA-Public Use
  Company Number: JP-ROCHE-649374

PATIENT
  Sex: Female
  Weight: 48 kg

DRUGS (30)
  1. TOCILIZUMAB [Suspect]
     Indication: RHEUMATOID ARTHRITIS
     Route: 041
     Dates: start: 20010710, end: 20060724
  2. TOCILIZUMAB [Suspect]
     Route: 041
     Dates: start: 20060821
  3. TOCILIZUMAB [Suspect]
     Route: 041
     Dates: start: 20080702, end: 20080702
  4. TOCILIZUMAB [Suspect]
     Route: 041
     Dates: start: 20080806, end: 20080806
  5. TOCILIZUMAB [Suspect]
     Route: 041
     Dates: start: 20080903, end: 20080903
  6. TOCILIZUMAB [Suspect]
     Route: 041
     Dates: start: 20081001, end: 20081001
  7. TOCILIZUMAB [Suspect]
     Route: 041
     Dates: start: 20081105, end: 20081105
  8. TOCILIZUMAB [Suspect]
     Route: 041
     Dates: start: 20081226, end: 20081226
  9. TOCILIZUMAB [Suspect]
     Route: 041
     Dates: start: 20090130, end: 20090130
  10. TOCILIZUMAB [Suspect]
     Route: 041
     Dates: start: 20090306, end: 20090306
  11. TOCILIZUMAB [Suspect]
     Route: 041
     Dates: start: 20090410, end: 20090410
  12. TOCILIZUMAB [Suspect]
     Route: 041
     Dates: start: 20090515, end: 20090515
  13. TOCILIZUMAB [Suspect]
     Route: 041
     Dates: start: 20090612, end: 20090612
  14. TOCILIZUMAB [Suspect]
     Dosage: DRUG DISCONTINUED
     Route: 041
     Dates: start: 20090710, end: 20090710
  15. PREDNISOLONE [Concomitant]
     Dosage: DOSE FORM: PERORAL AGENT
     Route: 048
  16. FOSAMAX [Concomitant]
     Dosage: DRUG REPORTED AS FOSAMAC
     Route: 048
     Dates: end: 20080903
  17. MEVALOTIN [Concomitant]
     Route: 048
     Dates: end: 20090910
  18. TAKEPRON [Concomitant]
     Route: 048
     Dates: end: 20090910
  19. MOBIC [Concomitant]
     Route: 048
     Dates: end: 20090910
  20. AMLODIPINE [Concomitant]
     Route: 048
     Dates: end: 20081005
  21. AMLODIPINE [Concomitant]
     Route: 048
     Dates: start: 20081006, end: 20090910
  22. EPADEL [Concomitant]
     Route: 048
     Dates: end: 20090910
  23. NU-LOTAN [Concomitant]
     Route: 048
     Dates: end: 20090910
  24. GLAKAY [Concomitant]
     Route: 048
     Dates: end: 20090910
  25. MARZULENE S [Concomitant]
     Route: 048
     Dates: end: 20090910
  26. SELBEX [Concomitant]
     Route: 048
     Dates: end: 20090910
  27. MYSLEE [Concomitant]
     Route: 048
     Dates: end: 20090910
  28. ACTONEL [Concomitant]
     Route: 048
     Dates: start: 20080903, end: 20090910
  29. LASIX [Concomitant]
     Route: 048
     Dates: start: 20081006, end: 20090910
  30. BLOPRESS [Concomitant]
     Route: 048
     Dates: start: 20081006, end: 20090910

REACTIONS (1)
  - PANCREATIC CARCINOMA [None]
